FAERS Safety Report 9507426 (Version 2)
Quarter: 2014Q2

REPORT INFORMATION
  Report Type: Spontaneous
  Country: US (occurrence: None)
  Receive Date: 20130904
  Receipt Date: 20140401
  Transmission Date: 20141212
  Serious: Yes (Death, Hospitalization, Other)
  Sender: FDA-Public Use
  Company Number: SYM-2013-10147

PATIENT
  Age: 64 Year
  Sex: Female

DRUGS (1)
  1. XENAZINE [Suspect]
     Indication: HUNTINGTON^S DISEASE
     Dosage: 25 MG AM - 25 MG AFTERNOON, 12.5 MG UNSPECIFIED TIME
     Route: 048
     Dates: start: 20120928

REACTIONS (4)
  - Dehydration [None]
  - Fluid intake reduced [None]
  - Micturition disorder [None]
  - Intestinal obstruction [None]
